FAERS Safety Report 10056135 (Version 1)
Quarter: 2014Q2

REPORT INFORMATION
  Report Type: Spontaneous
  Country: US (occurrence: None)
  Receive Date: 20140401
  Receipt Date: 20140401
  Transmission Date: 20141212
  Serious: Yes (Other)
  Sender: FDA-Public Use
  Company Number: 2014AP002378

PATIENT
  Sex: Female

DRUGS (11)
  1. PAROXETINE HCL TABLETS [Suspect]
  2. LACOSAMIDE [Suspect]
  3. TOPIRAMATE TABLETS [Suspect]
  4. PREGABALIN [Suspect]
  5. LORAZEPAM [Suspect]
  6. MEDROXYPROGESTERONE ACETATE [Suspect]
  7. VIMPAT [Concomitant]
  8. TOPAMAX [Concomitant]
  9. LYRICA [Concomitant]
  10. ATIVAN [Concomitant]
  11. DEPO PROVERA [Concomitant]

REACTIONS (5)
  - Convulsion [None]
  - Nightmare [None]
  - Drug interaction [None]
  - Dizziness [None]
  - Night sweats [None]
